FAERS Safety Report 16680824 (Version 1)
Quarter: 2019Q3

REPORT INFORMATION
  Report Type: Report from Study
  Country: CA (occurrence: CA)
  Receive Date: 20190808
  Receipt Date: 20190808
  Transmission Date: 20191004
  Serious: Yes (Other)
  Sender: FDA-Public Use
  Company Number: CA-PFIZER INC-2019334713

PATIENT
  Age: 32 Year
  Sex: Female
  Weight: 113 kg

DRUGS (15)
  1. DOCOSAHEXAENOIC ACID/EICOSAPENTAENOIC ACID [Concomitant]
     Dosage: UNK
  2. HYDROXYCHLOROQUINE SULFATE. [Concomitant]
     Active Substance: HYDROXYCHLOROQUINE SULFATE
     Dosage: UNK
  3. SINGULAIR [Concomitant]
     Active Substance: MONTELUKAST SODIUM
     Dosage: UNK
  4. TECTA [Concomitant]
     Active Substance: PANTOPRAZOLE MAGNESIUM
     Dosage: UNK
  5. METHOTREXATE SODIUM. [Suspect]
     Active Substance: METHOTREXATE SODIUM
     Dosage: 25.0 MG, UNK
     Route: 058
  6. ACTEMRA [Suspect]
     Active Substance: TOCILIZUMAB
     Indication: RHEUMATOID ARTHRITIS
     Dosage: 162.0 MG, WEEKLY
     Route: 058
  7. ACTEMRA [Suspect]
     Active Substance: TOCILIZUMAB
     Dosage: 800.0 MG, 1 EVERY 4 WEEKS
     Route: 042
  8. CYCLOBENZAPRINE HYDROCHLORIDE. [Concomitant]
     Active Substance: CYCLOBENZAPRINE HYDROCHLORIDE
     Dosage: UNK
  9. METHOTREXATE SODIUM. [Suspect]
     Active Substance: METHOTREXATE SODIUM
     Dosage: UNK
  10. METHOTREXATE SODIUM. [Suspect]
     Active Substance: METHOTREXATE SODIUM
     Dosage: 20 MG, UNK
     Route: 048
  11. ULTRAM [Concomitant]
     Active Substance: TRAMADOL HYDROCHLORIDE
     Dosage: UNK
  12. ACTEMRA [Suspect]
     Active Substance: TOCILIZUMAB
     Dosage: 800.0 MG, 1 EVERY 4 WEEKS
     Route: 042
  13. ACTEMRA [Suspect]
     Active Substance: TOCILIZUMAB
     Dosage: 162.0 MG, WEEKLY
     Route: 058
  14. FOLIC ACID. [Concomitant]
     Active Substance: FOLIC ACID
     Dosage: UNK
  15. NAPROXEN. [Concomitant]
     Active Substance: NAPROXEN
     Dosage: UNK

REACTIONS (13)
  - Dizziness postural [Not Recovered/Not Resolved]
  - Headache [Not Recovered/Not Resolved]
  - Poor venous access [Not Recovered/Not Resolved]
  - Migraine [Not Recovered/Not Resolved]
  - Nasopharyngitis [Not Recovered/Not Resolved]
  - Neck pain [Not Recovered/Not Resolved]
  - White blood cell count decreased [Not Recovered/Not Resolved]
  - Rhinorrhoea [Not Recovered/Not Resolved]
  - Stomatitis [Not Recovered/Not Resolved]
  - Fatigue [Not Recovered/Not Resolved]
  - Flushing [Not Recovered/Not Resolved]
  - Nasal congestion [Not Recovered/Not Resolved]
  - Photosensitivity reaction [Not Recovered/Not Resolved]
